FAERS Safety Report 5541511-5 (Version None)
Quarter: 2007Q4

REPORT INFORMATION
  Report Type: 
  Country: None (occurrence: None)
  Receive Date: 20071205
  Receipt Date: 20071120
  Transmission Date: 20080405
  Serious: Yes (Other)
  Sender: FDA-Public Use
  Company Number: 2007EU002617

PATIENT
  Age: 66 Year
  Sex: Male

DRUGS (4)
  1. PROGRAF [Suspect]
     Indication: HEART TRANSPLANT
     Dosage: 4 MG, D
     Dates: start: 20050101
  2. CORTICOSTEROIDS [Concomitant]
  3. ZYLORIC [Concomitant]
  4. COZAAR [Concomitant]

REACTIONS (2)
  - FIBROSIS [None]
  - INTERSTITIAL LUNG DISEASE [None]
